FAERS Safety Report 22196423 (Version 1)
Quarter: 2023Q2

REPORT INFORMATION
  Report Type: Spontaneous
  Country: IL (occurrence: IL)
  Receive Date: 20230411
  Receipt Date: 20230411
  Transmission Date: 20230721
  Serious: Yes (Other)
  Sender: FDA-Public Use
  Company Number: IL-AMGEN-ISRSP2023005246

PATIENT
  Age: 58 Year
  Sex: Male

DRUGS (8)
  1. FLUOROURACIL [Suspect]
     Active Substance: FLUOROURACIL
     Indication: Metastases to liver
  2. OXALIPLATIN [Suspect]
     Active Substance: OXALIPLATIN
     Indication: Adenocarcinoma of colon
  3. LEUCOVORIN [Suspect]
     Active Substance: LEUCOVORIN
     Indication: Metastases to liver
  4. PANITUMUMAB [Concomitant]
     Active Substance: PANITUMUMAB
     Indication: Metastases to liver
  5. LEUCOVORIN [Suspect]
     Active Substance: LEUCOVORIN
     Indication: Adenocarcinoma of colon
  6. PANITUMUMAB [Concomitant]
     Active Substance: PANITUMUMAB
     Indication: Adenocarcinoma of colon
  7. OXALIPLATIN [Suspect]
     Active Substance: OXALIPLATIN
     Indication: Metastases to liver
  8. FLUOROURACIL [Suspect]
     Active Substance: FLUOROURACIL
     Indication: Adenocarcinoma of colon

REACTIONS (3)
  - Anxiety [Recovering/Resolving]
  - Gastrointestinal disorder [Unknown]
  - Neuropathy peripheral [Recovering/Resolving]
